FAERS Safety Report 7153514-8 (Version None)
Quarter: 2010Q4

REPORT INFORMATION
  Report Type: 
  Country: None (occurrence: None)
  Receive Date: 20101213
  Receipt Date: 20101206
  Transmission Date: 20110411
  Serious: Yes (Hospitalization)
  Sender: FDA-Public Use
  Company Number: B0688654A

PATIENT
  Age: 44 Year
  Sex: Male

DRUGS (9)
  1. AUGMENTIN [Suspect]
     Route: 065
  2. CEFUROXIME [Suspect]
     Route: 065
  3. ALLOPURINOL [Suspect]
     Route: 065
  4. PARACETAMOL [Concomitant]
     Route: 065
  5. CEFIXIME [Concomitant]
     Route: 065
  6. COLCHICINE [Concomitant]
  7. IBUPROFEN [Concomitant]
  8. MELOXICAM [Concomitant]
  9. SIMVASTATIN [Concomitant]

REACTIONS (11)
  - CONDITION AGGRAVATED [None]
  - DYSPHAGIA [None]
  - MUCOSAL EROSION [None]
  - OCULAR HYPERAEMIA [None]
  - ODYNOPHAGIA [None]
  - PYREXIA [None]
  - RASH [None]
  - RENAL DISORDER [None]
  - RENAL IMPAIRMENT [None]
  - SKIN LESION [None]
  - TOXIC EPIDERMAL NECROLYSIS [None]
